FAERS Safety Report 12130418 (Version 1)
Quarter: 2016Q1

REPORT INFORMATION
  Report Type: Spontaneous
  Country: US (occurrence: None)
  Receive Date: 20160229
  Receipt Date: 20160229
  Transmission Date: 20160526
  Serious: No
  Sender: FDA-Public Use
  Company Number: None

PATIENT
  Sex: Male
  Weight: 131.09 kg

DRUGS (1)
  1. MOVANTIK [Suspect]
     Active Substance: NALOXEGOL OXALATE
     Indication: CONSTIPATION
     Dosage: 25 MG , 30 TABLETS, T PO QD, BY MOUTH
     Route: 048
     Dates: start: 20160225, end: 20160226

REACTIONS (3)
  - Hyperhidrosis [None]
  - Abdominal pain [None]
  - Muscle spasms [None]
